FAERS Safety Report 4555744-8 (Version None)
Quarter: 2005Q1

REPORT INFORMATION
  Report Type: 
  Country: None (occurrence: None)
  Receive Date: 20050112
  Receipt Date: 20040116
  Transmission Date: 20050727
  Serious: Yes (Other)
  Sender: FDA-Public Use
  Company Number: 200320107BWH

PATIENT
  Age: 87 Year
  Sex: Female
  Weight: 50.3493 kg

DRUGS (2)
  1. CIPRO [Suspect]
     Indication: URINARY TRACT INFECTION
     Dates: start: 20030530, end: 20030605
  2. PROPRANOLOL [Concomitant]

REACTIONS (1)
  - TINNITUS [None]
